FAERS Safety Report 19963722 (Version 1)
Quarter: 2021Q4

REPORT INFORMATION
  Report Type: Spontaneous
  Country: US (occurrence: US)
  Receive Date: 20211018
  Receipt Date: 20211018
  Transmission Date: 20220303
  Serious: Yes (unspecified)
  Sender: FDA-Public Use
  Company Number: None

PATIENT
  Age: 52 Year
  Sex: Male
  Weight: 91.1 kg

DRUGS (6)
  1. OCRELIZUMAB [Suspect]
     Active Substance: OCRELIZUMAB
     Indication: Multiple sclerosis
     Dosage: ?          OTHER FREQUENCY:ONE TIME INFUSION;
     Route: 041
     Dates: start: 20211016, end: 20211016
  2. Famotidine 20 mg IVP [Concomitant]
     Dates: start: 20211016, end: 20211016
  3. Diphenhydramine 50 mg IVP [Concomitant]
     Dates: start: 20211016, end: 20211016
  4. Meperidine 25 mg IVP [Concomitant]
     Dates: start: 20211016, end: 20211016
  5. Epi Pen Adult [Concomitant]
     Dates: start: 20211016, end: 20211016
  6. Hydrocortisone 100 mg IVP [Concomitant]
     Dates: start: 20211016, end: 20211016

REACTIONS (6)
  - Nausea [None]
  - Chest pain [None]
  - Hyperhidrosis [None]
  - Malaise [None]
  - Throat irritation [None]
  - Injection related reaction [None]

NARRATIVE: CASE EVENT DATE: 20211016
